FAERS Safety Report 14015663 (Version 1)
Quarter: 2017Q3

REPORT INFORMATION
  Report Type: Spontaneous
  Country: JP (occurrence: JP)
  Receive Date: 20170927
  Receipt Date: 20170927
  Transmission Date: 20171128
  Serious: Yes (Hospitalization)
  Sender: FDA-Public Use
  Company Number: JP-SUN PHARMACEUTICAL INDUSTRIES LTD-2017R3-150523

PATIENT
  Sex: Female

DRUGS (1)
  1. APRESOLINE HYDROCHLORIDE [Suspect]
     Active Substance: HYDRALAZINE HYDROCHLORIDE
     Indication: GESTATIONAL HYPERTENSION
     Route: 048

REACTIONS (4)
  - Live birth [Unknown]
  - Oedema [Recovering/Resolving]
  - Exposure during pregnancy [Recovered/Resolved]
  - Peripartum cardiomyopathy [Recovering/Resolving]
